FAERS Safety Report 5522614-8 (Version None)
Quarter: 2007Q4

REPORT INFORMATION
  Report Type: 
  Country: None (occurrence: None)
  Receive Date: 20071120
  Receipt Date: 20071109
  Transmission Date: 20080405
  Serious: Yes (Hospitalization)
  Sender: FDA-Public Use
  Company Number: CA-SHR-CA-2006-009714

PATIENT
  Age: 66 Year
  Sex: Female
  Weight: 78 kg

DRUGS (10)
  1. BETASERON [Suspect]
     Indication: SECONDARY PROGRESSIVE MULTIPLE SCLEROSIS
     Dosage: 8 MIU, EVERY 2D
     Route: 058
     Dates: start: 20000721, end: 20070523
  2. ARISTOCORT [Suspect]
  3. DIAZEPAM [Concomitant]
     Indication: ANXIETY
     Route: 048
  4. NITRAZADON [Concomitant]
     Indication: INSOMNIA
     Route: 048
  5. SYNTHROID [Concomitant]
     Indication: HYPOTHYROIDISM
     Route: 048
  6. APO-SIMVASTATIN [Concomitant]
     Route: 048
  7. RHOTRAL [Concomitant]
     Route: 048
  8. NORVASC [Concomitant]
     Indication: HYPERTENSION
     Route: 048
  9. APO-FUROSEMIDE [Concomitant]
     Indication: HYPERTENSION
     Route: 048
  10. ANTIBIOTICS [Suspect]

REACTIONS (10)
  - DRUG HYPERSENSITIVITY [None]
  - INJECTION SITE ERYTHEMA [None]
  - INJECTION SITE REACTION [None]
  - INJECTION SITE SWELLING [None]
  - INJECTION SITE ULCER [None]
  - KIDNEY INFECTION [None]
  - NOSOCOMIAL INFECTION [None]
  - PHOTOSENSITIVITY REACTION [None]
  - SKIN WRINKLING [None]
  - URTICARIA [None]
